FAERS Safety Report 23235392 (Version 1)
Quarter: 2023Q4

REPORT INFORMATION
  Report Type: Spontaneous
  Country: US (occurrence: None)
  Receive Date: 20231128
  Receipt Date: 20231128
  Transmission Date: 20240110
  Serious: Yes (Hospitalization)
  Sender: FDA-Public Use
  Company Number: None

PATIENT
  Sex: Male

DRUGS (3)
  1. CABENUVA [Suspect]
     Active Substance: CABOTEGRAVIR\RILPIVIRINE
     Indication: HIV infection
     Dosage: OTHER QUANTITY : 3ML/3ML;?
     Route: 030
     Dates: start: 202309
  2. LETAIRIS [Suspect]
     Active Substance: AMBRISENTAN
  3. OPSUMIT [Concomitant]
     Active Substance: MACITENTAN

REACTIONS (5)
  - Gastrooesophageal reflux disease [None]
  - Headache [None]
  - Nasal congestion [None]
  - Dizziness [None]
  - Dehydration [None]
